FAERS Safety Report 6928758-8 (Version None)
Quarter: 2010Q3

REPORT INFORMATION
  Report Type: 
  Country: None (occurrence: None)
  Receive Date: 20100817
  Receipt Date: 20100805
  Transmission Date: 20110219
  Serious: Yes (Other)
  Sender: FDA-Public Use
  Company Number: US-WYE-H16777410

PATIENT
  Sex: Male
  Weight: 90.8 kg

DRUGS (7)
  1. EFFEXOR XR [Suspect]
     Route: 048
     Dates: end: 20100802
  2. KADIAN [Concomitant]
     Dosage: UNKNOWN
  3. PHENYTOIN [Concomitant]
  4. ESOMEPRAZOLE MAGNESIUM [Concomitant]
  5. PHENOBARBITAL [Concomitant]
  6. HYDROCODONE BITARTRATE [Concomitant]
     Dosage: UNKNOWN
  7. LACTULOSE [Concomitant]

REACTIONS (6)
  - ABDOMINAL DISCOMFORT [None]
  - DRUG WITHDRAWAL SYNDROME [None]
  - FATIGUE [None]
  - HYPERHIDROSIS [None]
  - NAUSEA [None]
  - ROAD TRAFFIC ACCIDENT [None]
